FAERS Safety Report 13943159 (Version 1)
Quarter: 2017Q3

REPORT INFORMATION
  Report Type: Spontaneous
  Country: US (occurrence: None)
  Receive Date: 20170907
  Receipt Date: 20170907
  Transmission Date: 20171128
  Serious: No
  Sender: FDA-Public Use
  Company Number: None

PATIENT
  Age: 37 Year
  Sex: Female

DRUGS (1)
  1. EPCLUSA [Suspect]
     Active Substance: SOFOSBUVIR\VELPATASVIR
     Indication: HEPATITIS C
     Dosage: 400/100 QD ORAL
     Route: 048
     Dates: start: 20170815

REACTIONS (2)
  - Drug dose omission [None]
  - Nasopharyngitis [None]

NARRATIVE: CASE EVENT DATE: 20170820
